FAERS Safety Report 9912504 (Version 2)
Quarter: 2015Q4

REPORT INFORMATION
  Report Type: Report from Study
  Country: US (occurrence: US)
  Receive Date: 20140220
  Receipt Date: 20151210
  Transmission Date: 20160305
  Serious: Yes (Hospitalization, Other)
  Sender: FDA-Public Use
  Company Number: US-AMGEN-USASP2014011725

PATIENT
  Age: 59 Year
  Sex: Female

DRUGS (19)
  1. PEGFILGRASTIM [Suspect]
     Active Substance: PEGFILGRASTIM
     Indication: CERVIX CARCINOMA
     Dosage: 6 MG, UNK
     Route: 058
  2. SENOKOT [Concomitant]
     Active Substance: SENNOSIDES
     Dosage: UNK
     Route: 048
  3. METHYLPREDNISOLONE SODIUM SUCCINATE. [Concomitant]
     Active Substance: METHYLPREDNISOLONE SODIUM SUCCINATE
     Indication: HYPERSENSITIVITY
     Dosage: 125 MG, UNK
  4. FAMOTIDINE. [Concomitant]
     Active Substance: FAMOTIDINE
     Dosage: 20 MG, UNK
     Route: 042
  5. CARBOPLATIN. [Concomitant]
     Active Substance: CARBOPLATIN
     Dosage: 570 MG, UNK
     Route: 040
     Dates: start: 20110309, end: 20110714
  6. VICODIN [Concomitant]
     Active Substance: ACETAMINOPHEN\HYDROCODONE BITARTRATE
     Indication: PAIN
     Dosage: 5MG-500MG TAKE 1 PO Q4H
     Route: 048
  7. EMEND [Concomitant]
     Active Substance: APREPITANT
     Dosage: 125-80 MG DAILY
     Route: 048
  8. DEXAMETHASONE. [Concomitant]
     Active Substance: DEXAMETHASONE
     Dosage: 20 MG, 12 HRS AND 6 HRS BEFORE PACLITAXEL CHEMO
     Route: 048
  9. ALOXI [Concomitant]
     Active Substance: PALONOSETRON HYDROCHLORIDE
     Dosage: 0.25 MG, UNK
     Route: 042
  10. BENADRYL [Concomitant]
     Active Substance: DIPHENHYDRAMINE HYDROCHLORIDE
     Indication: HYPERSENSITIVITY
     Dosage: 25 MG, UNK
     Route: 042
  11. TAXOL [Concomitant]
     Active Substance: PACLITAXEL
     Dosage: 175 MG/M2, UNK
     Route: 040
     Dates: start: 20110309, end: 20110714
  12. VOLTAREN [Concomitant]
     Active Substance: DICLOFENAC SODIUM
     Dosage: TAKE 1 APPLICATION TOPICAL QID (4 IN 1 D)
     Route: 061
  13. VITAMIN C [Concomitant]
     Active Substance: ASCORBIC ACID
     Dosage: UNK
     Route: 048
  14. CEPHALEXIN                         /00145501/ [Concomitant]
     Active Substance: CEPHALEXIN
     Dosage: UNK
     Route: 048
  15. HYDROCORTISONE SODIUM [Concomitant]
     Indication: HYPERSENSITIVITY
     Dosage: 100 MG, UNK
  16. AVASTIN [Suspect]
     Active Substance: BEVACIZUMAB
     Indication: CERVIX CARCINOMA
     Dosage: 500 MG, UNK
     Route: 040
     Dates: start: 20110309, end: 20111122
  17. NEURONTIN [Concomitant]
     Active Substance: GABAPENTIN
     Dosage: 300 MG, 3 IN 1 D FOR 3 DAYS
     Route: 048
  18. PROCHLORPERAZINE MALEATE. [Concomitant]
     Active Substance: PROCHLORPERAZINE MALEATE
     Indication: PAIN
     Dosage: 10 MG, TAKE 1 PO Q6H
     Route: 048
  19. PACLITAXEL. [Concomitant]
     Active Substance: PACLITAXEL
     Dosage: 306 MG, UNK
     Route: 040

REACTIONS (20)
  - Thrombosis [Unknown]
  - Dehydration [Unknown]
  - Pelvic pain [Unknown]
  - Malaise [Unknown]
  - Neutropenia [Unknown]
  - Congenital neuropathy [Unknown]
  - Phlebitis [Recovering/Resolving]
  - Thrombocytopenia [Unknown]
  - Thrombophlebitis [Unknown]
  - Pain in extremity [Unknown]
  - Off label use [Unknown]
  - Pyrexia [Unknown]
  - Cyst [Unknown]
  - Mucosal atrophy [Unknown]
  - Dermatitis acneiform [Unknown]
  - Perineal ulceration [Unknown]
  - Febrile neutropenia [Unknown]
  - Infection [Unknown]
  - Neuropathy peripheral [Unknown]
  - Pain [Unknown]

NARRATIVE: CASE EVENT DATE: 20110318
